FAERS Safety Report 9542970 (Version 1)
Quarter: 2013Q3

REPORT INFORMATION
  Report Type: Spontaneous
  Country: GB (occurrence: GB)
  Receive Date: 20130923
  Receipt Date: 20130923
  Transmission Date: 20140515
  Serious: Yes (Disabling, Other)
  Sender: FDA-Public Use
  Company Number: GB-PFIZER INC-2013269502

PATIENT
  Age: 7 Decade
  Sex: Female

DRUGS (1)
  1. SERTRALINE HCL [Suspect]
     Dosage: 50MG OR 100MG
     Route: 048
     Dates: start: 20130905, end: 20130907

REACTIONS (2)
  - Tremor [Recovered/Resolved]
  - Emotional distress [Unknown]
